FAERS Safety Report 5193635-2 (Version None)
Quarter: 2006Q4

REPORT INFORMATION
  Report Type: 
  Country: None (occurrence: None)
  Receive Date: 20061221
  Receipt Date: 20061213
  Transmission Date: 20070319
  Serious: Yes (Death, Hospitalization)
  Sender: FDA-Public Use
  Company Number: 163-20785-06111354

PATIENT
  Age: 71 Year
  Sex: Male

DRUGS (14)
  1. THALOMID [Suspect]
     Indication: MULTIPLE MYELOMA
     Dosage: 200 MG, 1 IN 1 D, ORAL
     Route: 048
     Dates: start: 20051109, end: 20061117
  2. NEXIUM [Concomitant]
  3. LOPRESSOR [Concomitant]
  4. PHENOBARBITAL TAB [Concomitant]
  5. FLEXERIL [Concomitant]
  6. ATIVAN [Concomitant]
  7. MIRALAX [Concomitant]
  8. MINERAL OIL (MINERAL OIL EMULSION) [Concomitant]
  9. DURAGESIC-100 [Concomitant]
  10. NORVASC [Concomitant]
  11. COUMADIN [Concomitant]
  12. MORPHINE [Concomitant]
  13. PERCOCET [Concomitant]
  14. PREPARATION H [Concomitant]

REACTIONS (2)
  - FALL [None]
  - HIP FRACTURE [None]
